FAERS Safety Report 15019991 (Version 2)
Quarter: 2018Q4

REPORT INFORMATION
  Report Type: Report from Study
  Country: FR (occurrence: FR)
  Receive Date: 20180618
  Receipt Date: 20181026
  Transmission Date: 20190204
  Serious: Yes (Hospitalization)
  Sender: FDA-Public Use
  Company Number: FR-ROCHE-2135668

PATIENT
  Age: 46 Year
  Sex: Female
  Weight: 61.3 kg

DRUGS (6)
  1. KETOPROFEN. [Suspect]
     Active Substance: KETOPROFEN
     Indication: PRODUCT USED FOR UNKNOWN INDICATION
     Route: 065
     Dates: start: 2015
  2. RO 6874281 (FAP IL2V MAB) [Suspect]
     Active Substance: RO-6874281
     Indication: NEOPLASM
     Dosage: THIS WAS ALSO THE MOST RECENT DOSE PRIOR TO EVENT (CATHETER INFECTION) ONSET.?DATE OF LAST DOSE (20
     Route: 042
     Dates: start: 20180530
  3. TRASTUZUMAB. [Suspect]
     Active Substance: TRASTUZUMAB
     Indication: NEOPLASM
     Dosage: THIS WAS ALSO HER MOST RECENT DOSE PRIOR TO EVENT (CATHETER INFECTION) ONSET.?DATE OF LAST DOSE (117
     Route: 042
     Dates: start: 20180530
  4. LACTULOSE. [Concomitant]
     Active Substance: LACTULOSE
     Route: 065
  5. VANCOMYCIN [Suspect]
     Active Substance: VANCOMYCIN
     Indication: DEVICE RELATED INFECTION
     Route: 065
     Dates: start: 20180601, end: 20180610
  6. LYRICA [Concomitant]
     Active Substance: PREGABALIN
     Route: 065
     Dates: start: 201804

REACTIONS (2)
  - Device related infection [Recovered/Resolved]
  - Renal failure [Recovering/Resolving]

NARRATIVE: CASE EVENT DATE: 20180531
